FAERS Safety Report 7442751-0 (Version None)
Quarter: 2011Q2

REPORT INFORMATION
  Report Type: 
  Country: None (occurrence: None)
  Receive Date: 20110419
  Receipt Date: 20110404
  Transmission Date: 20111010
  Serious: Yes (Hospitalization)
  Sender: FDA-Public Use
  Company Number: 1000020028

PATIENT
  Age: 84 Year
  Sex: Female
  Weight: 42 kg

DRUGS (12)
  1. CITALOPRAM HYDROBROMIDE [Suspect]
     Indication: DEPRESSION
     Dosage: 20 MG (20 MG,1 IN 1 D),ORAL
     Route: 048
     Dates: end: 20110216
  2. RAMIPULS STADA (RAMIPRIL, HYDROCHLOROTHIAZIDE) (TABLETS) (RAMIPRIL,  H [Concomitant]
  3. METOPROLOL-CORAX (METOPROLOL TARTRATE (TABLETS) (METOPROLOL TARTRATE_ [Concomitant]
  4. RADEDROM (NITRAZEPAM) (TABLETS) (NITRAZEPAM) [Concomitant]
  5. AMLODIPINE [Concomitant]
  6. GLIMEPRIDE (GLIMEPRIDE) (TABLETS) (GLIMEPRIDE) [Concomitant]
  7. RAMICARD (RAMIPRIL) (TABLETS) (RAMIPRIL) [Concomitant]
  8. STARLIX (NATEGLINIDE) (TABLETS) (NATEGLINIDE) [Concomitant]
  9. ASPIRIN [Concomitant]
  10. INSULIN LANTUS (INSULIN GLARGINE) (SOLUTION) (INSULIN GLARGINE) [Concomitant]
  11. STILNOX (ZOLPIDEM) (TABLETS) (ZOLPIDEM) [Concomitant]
  12. ALENDRONIC  ACID (ALENDRONIC ACID) (TABLETS) (ALENDRONIC ACID) [Concomitant]

REACTIONS (12)
  - BLOOD CREATININE DECREASED [None]
  - EMPHYSEMA [None]
  - HEPATIC CYST [None]
  - PALPITATIONS [None]
  - LIPASE DECREASED [None]
  - SYNCOPE [None]
  - HEPATIC STEATOSIS [None]
  - URINE SODIUM INCREASED [None]
  - BLOOD BILIRUBIN INCREASED [None]
  - BLOOD CHLORIDE DECREASED [None]
  - INAPPROPRIATE ANTIDIURETIC HORMONE SECRETION [None]
  - HYPOGLYCAEMIA [None]
